FAERS Safety Report 7816295-8 (Version None)
Quarter: 2011Q4

REPORT INFORMATION
  Report Type: 
  Country: None (occurrence: None)
  Receive Date: 20111016
  Receipt Date: 20111003
  Transmission Date: 20120403
  Serious: Yes (Hospitalization)
  Sender: FDA-Public Use
  Company Number: GB-MYLANLABS-2011S1012197

PATIENT
  Age: 43 Year
  Sex: Female
  Weight: 67 kg

DRUGS (5)
  1. ANGIOTENSIN II ANTAGONISTS [Concomitant]
     Indication: PRODUCT USED FOR UNKNOWN INDICATION
  2. CITALOPRAM [Suspect]
     Indication: DEPRESSION
     Dates: start: 20110407
  3. CANDESARTAN CILEXETIL [Concomitant]
     Indication: PRODUCT USED FOR UNKNOWN INDICATION
     Dates: start: 20110204, end: 20110304
  4. CANDESARTAN CILEXETIL [Concomitant]
     Dates: start: 20110404
  5. CITALOPRAM [Suspect]

REACTIONS (3)
  - AGITATION [None]
  - MALAISE [None]
  - ACUTE PSYCHOSIS [None]
